FAERS Safety Report 5400020-4 (Version None)
Quarter: 2007Q3

REPORT INFORMATION
  Report Type: 
  Country: None (occurrence: None)
  Receive Date: 20070730
  Receipt Date: 20070718
  Transmission Date: 20080115
  Serious: Yes (Other)
  Sender: FDA-Public Use
  Company Number: US-AMGEN-US159136

PATIENT
  Age: 44 Year
  Sex: Female

DRUGS (6)
  1. ENBREL [Suspect]
     Indication: SCLERODERMA
     Route: 058
     Dates: start: 19990601, end: 20010701
  2. ENBREL [Suspect]
     Indication: CONNECTIVE TISSUE DISORDER
  3. ENBREL [Suspect]
     Indication: POLYARTHRITIS
  4. NSAID [Concomitant]
     Dates: end: 20000301
  5. PREDNISONE [Concomitant]
     Dates: end: 20000301
  6. METHOTREXATE [Concomitant]
     Dates: end: 20000301

REACTIONS (9)
  - ANAEMIA [None]
  - ARTHRITIS [None]
  - AUTOANTIBODY POSITIVE [None]
  - CONDITION AGGRAVATED [None]
  - FEBRILE INFECTION [None]
  - HYPOCOMPLEMENTAEMIA [None]
  - LUPUS-LIKE SYNDROME [None]
  - MALAISE [None]
  - POLYARTHRITIS [None]
